FAERS Safety Report 8464624-7 (Version None)
Quarter: 2012Q2

REPORT INFORMATION
  Report Type: 
  Country: None (occurrence: None)
  Receive Date: 20120323
  Receipt Date: 20111007
  Transmission Date: 20120825
  Serious: Yes (Hospitalization)
  Sender: FDA-Public Use
  Company Number: 163-21880-11101100

PATIENT
  Age: 77 Year
  Sex: Male

DRUGS (11)
  1. AREDIA [Concomitant]
  2. COZAAR [Concomitant]
  3. REVLIMID [Suspect]
     Indication: MULTIPLE MYELOMA
     Dosage: 25 MG, 1 IN 1 D, PO
     Route: 048
     Dates: start: 20101230
  4. GABAPENTNI (GABAPENTIN) [Concomitant]
  5. PREDNISONE TAB [Concomitant]
  6. FINASTERIDE [Concomitant]
  7. BROMDAY SOL (ALL OTHER THERAPEUTIC PRODUCTS) [Concomitant]
  8. ASPIRIN [Concomitant]
  9. ANTIBIOTICS (ANTIBIOTICS) [Concomitant]
  10. PANTOPRAZOLE [Concomitant]
  11. DEXAMETHASONE [Concomitant]

REACTIONS (2)
  - PNEUMONIA [None]
  - WHITE BLOOD CELL COUNT DECREASED [None]
